FAERS Safety Report 10308653 (Version 1)
Quarter: 2014Q3

REPORT INFORMATION
  Report Type: Spontaneous
  Country: JP (occurrence: JP)
  Receive Date: 20140716
  Receipt Date: 20140716
  Transmission Date: 20150326
  Serious: Yes (Other)
  Sender: FDA-Public Use
  Company Number: PHHY2014JP085901

PATIENT

DRUGS (1)
  1. METHOTREXATE [Suspect]
     Active Substance: METHOTREXATE
     Indication: RHEUMATOID ARTHRITIS
     Dosage: 8 MG, PER WEEK
     Route: 048

REACTIONS (10)
  - Skin mass [Recovered/Resolved]
  - Epstein-Barr virus infection [Unknown]
  - Interleukin-2 receptor increased [Recovered/Resolved]
  - Epstein-Barr virus test positive [Recovered/Resolved]
  - Hyperplasia [Recovered/Resolved]
  - Lymphoproliferative disorder [Recovered/Resolved]
  - Lymphocytic infiltration [Recovered/Resolved]
  - Pyrexia [Recovered/Resolved]
  - Blood lactate dehydrogenase increased [Recovered/Resolved]
  - Malaise [Recovered/Resolved]
